FAERS Safety Report 21481602 (Version 4)
Quarter: 2022Q4

REPORT INFORMATION
  Report Type: Report from Study
  Country: US (occurrence: None)
  Receive Date: 20221020
  Receipt Date: 20221221
  Transmission Date: 20230112
  Serious: Yes (Other)
  Sender: FDA-Public Use
  Company Number: US-ROCHE-3200896

PATIENT
  Age: 65 Year
  Sex: Female

DRUGS (5)
  1. ATEZOLIZUMAB [Suspect]
     Active Substance: ATEZOLIZUMAB
     Indication: Pancreatic carcinoma
     Dosage: THE LAST DOSE PRIOR TO THE EVENT WAS ADMINISTERED ON 17/AUG/2022 (STUDY WEEK 13).
     Route: 041
     Dates: start: 20220525
  2. GEMCITABINE [Suspect]
     Active Substance: GEMCITABINE
     Indication: Pancreatic carcinoma
     Dosage: DOSE WAS REDUCED ON 02/JUN/2022 TO (800 MG/M2) AND AGAIN ON 31/AUG/2022 TO (600 MG/M2)
     Route: 065
     Dates: start: 20220525, end: 20220831
  3. FLUOROURACIL\IRINOTECAN\LEUCOVORIN\OXALIPLATIN [Concomitant]
     Active Substance: FLUOROURACIL\IRINOTECAN\LEUCOVORIN\OXALIPLATIN
     Indication: Adenocarcinoma pancreas
     Dates: start: 20200302, end: 20200703
  4. FLUOROURACIL\IRINOTECAN\LEUCOVORIN [Concomitant]
     Active Substance: FLUOROURACIL\IRINOTECAN\LEUCOVORIN
     Indication: Adenocarcinoma pancreas
     Dates: start: 20200730, end: 20220421
  5. ABRAXANE [Concomitant]
     Active Substance: PACLITAXEL
     Dosage: DOSE WAS REDUCED ON 02/JUN/2022 TO (100 MG/M2) AND AGAIN ON 31/AUG/2022 TO (75 MG/M2)
     Dates: start: 20220525, end: 20220831

REACTIONS (1)
  - Acute kidney injury [Recovered/Resolved with Sequelae]

NARRATIVE: CASE EVENT DATE: 20220915
